FAERS Safety Report 4516365-6 (Version None)
Quarter: 2004Q4

REPORT INFORMATION
  Report Type: 
  Country: None (occurrence: None)
  Receive Date: 20041202
  Receipt Date: 20040607
  Transmission Date: 20050328
  Serious: No
  Sender: FDA-Public Use
  Company Number: US-GLAXOSMITHKLINE-A0513617A

PATIENT
  Age: 36 Year
  Sex: Male

DRUGS (2)
  1. AUGMENTIN ES-600 [Suspect]
     Indication: EAR INFECTION
     Dosage: 1TSP TWICE PER DAY
     Route: 048
  2. NO CONCURRENT MEDICATION [Concomitant]

REACTIONS (4)
  - BLISTER [None]
  - PRURITUS [None]
  - RASH ERYTHEMATOUS [None]
  - SWELLING [None]
